FAERS Safety Report 6691901-2 (Version None)
Quarter: 2010Q2

REPORT INFORMATION
  Report Type: 
  Country: None (occurrence: None)
  Receive Date: 20100422
  Receipt Date: 20091116
  Transmission Date: 20101027
  Serious: No
  Sender: FDA-Public Use
  Company Number: US-ASTRAZENECA-2009SE26662

PATIENT
  Age: 68 Year
  Sex: Female

DRUGS (6)
  1. METOPROLOL SUCCINATE [Suspect]
     Route: 048
  2. GLUCOPHAGE [Concomitant]
     Indication: DIABETES MELLITUS
  3. JANUVIA [Concomitant]
     Indication: DIABETES MELLITUS
  4. CRESTOR [Concomitant]
     Indication: BLOOD CHOLESTEROL INCREASED
  5. SYNTHROID [Concomitant]
     Indication: HYPOTHYROIDISM
  6. DIVAN [Concomitant]
     Indication: HYPERTENSION

REACTIONS (5)
  - HYPOAESTHESIA [None]
  - MUSCULAR WEAKNESS [None]
  - PARAESTHESIA [None]
  - PERIPHERAL COLDNESS [None]
  - TREMOR [None]
